FAERS Safety Report 5424428-6 (Version None)
Quarter: 2007Q3

REPORT INFORMATION
  Report Type: 
  Country: None (occurrence: None)
  Receive Date: 20070727
  Receipt Date: 20070403
  Transmission Date: 20080115
  Serious: No
  Sender: FDA-Public Use
  Company Number: 262494

PATIENT
  Age: 48 Year
  Sex: Female

DRUGS (2)
  1. LEVEMIR [Suspect]
     Indication: DIABETES MELLITUS
     Dosage: 100 IU, QD, SUBCUTANEOUS
     Route: 058
     Dates: start: 20070101
  2. ACTOS /01460201/(PIOGLITAZONE) [Concomitant]

REACTIONS (2)
  - INJECTION [None]
  - PRURITUS [None]
